FAERS Safety Report 6106473-0 (Version None)
Quarter: 2009Q1

REPORT INFORMATION
  Report Type: 
  Country: None (occurrence: None)
  Receive Date: 20090306
  Receipt Date: 20090224
  Transmission Date: 20090719
  Serious: Yes (Other)
  Sender: FDA-Public Use
  Company Number: US-WATSON-2009-01351

PATIENT
  Age: 20 Year
  Sex: Female

DRUGS (3)
  1. DOXYCYCLINE HYCLATE [Suspect]
     Indication: ACNE
     Dosage: 100 MG, BID
     Route: 048
     Dates: start: 20090207
  2. DOXYCYCLINE HYCLATE [Suspect]
     Dosage: 100 MG, BID
     Route: 048
     Dates: start: 20081226, end: 20090207
  3. DOXYCYCLINE HYCLATE [Suspect]
     Dosage: 100 MG, DAILY
     Route: 048
     Dates: start: 20081001, end: 20081226

REACTIONS (1)
  - OCULAR ICTERUS [None]
